FAERS Safety Report 10733309 (Version 2)
Quarter: 2015Q1

REPORT INFORMATION
  Report Type: Spontaneous
  Country: US (occurrence: US)
  Receive Date: 20150123
  Receipt Date: 20150226
  Transmission Date: 20150721
  Serious: Yes (Hospitalization, Other)
  Sender: FDA-Public Use
  Company Number: US-BAYER-2015-009096

PATIENT
  Age: 27 Year
  Sex: Female
  Weight: 66.21 kg

DRUGS (1)
  1. MIRENA [Suspect]
     Active Substance: LEVONORGESTREL
     Indication: CONTRACEPTION
     Dosage: 20 MCG/24HR, CONT
     Route: 015
     Dates: start: 20090405, end: 20130131

REACTIONS (10)
  - Infertility female [None]
  - Device dislocation [None]
  - Device difficult to use [None]
  - Emotional distress [None]
  - Device issue [None]
  - Embedded device [None]
  - Genital haemorrhage [None]
  - Injury [None]
  - Pain [None]
  - Depression [None]

NARRATIVE: CASE EVENT DATE: 200910
